FAERS Safety Report 15940850 (Version 1)
Quarter: 2019Q1

REPORT INFORMATION
  Report Type: Spontaneous
  Country: DE (occurrence: DE)
  Receive Date: 20190208
  Receipt Date: 20190208
  Transmission Date: 20190417
  Serious: Yes (Life-Threatening, Other)
  Sender: FDA-Public Use
  Company Number: DE-SHIRE-DE201903869

PATIENT

DRUGS (1)
  1. HUMAN ALBUMIN [Suspect]
     Active Substance: ALBUMIN HUMAN
     Indication: PRODUCT USED FOR UNKNOWN INDICATION
     Dosage: 1 UNKNOWN
     Route: 042

REACTIONS (4)
  - Pruritus [Recovered/Resolved with Sequelae]
  - Dyspnoea [Recovered/Resolved with Sequelae]
  - Urticaria [Recovered/Resolved with Sequelae]
  - Malaise [Recovered/Resolved with Sequelae]

NARRATIVE: CASE EVENT DATE: 20181111
